FAERS Safety Report 9421041 (Version 1)
Quarter: 2013Q3

REPORT INFORMATION
  Report Type: Report from Study
  Country: US (occurrence: US)
  Receive Date: 20130725
  Receipt Date: 20130725
  Transmission Date: 20140515
  Serious: Yes (Other)
  Sender: FDA-Public Use
  Company Number: US-JNJFOC-20130604080

PATIENT
  Age: 58 Year
  Sex: Female

DRUGS (17)
  1. SIMPONI [Suspect]
     Indication: PSORIATIC ARTHROPATHY
     Route: 058
     Dates: start: 20130503, end: 20130503
  2. ALDACTONE [Concomitant]
  3. LISINOPRIL [Concomitant]
  4. CRESTOR [Concomitant]
  5. METHOTREXATE [Concomitant]
  6. PREDNISONE [Concomitant]
  7. FOLIC ACID [Concomitant]
  8. ACTONEL [Concomitant]
  9. CALCIUM [Concomitant]
  10. PLAVIX [Concomitant]
  11. CYMBALTA [Concomitant]
  12. PERCOCET [Concomitant]
  13. FENTANYL [Concomitant]
  14. COMBIVENT [Concomitant]
  15. RANITIDINE [Concomitant]
  16. DOCUSATE SODIUM [Concomitant]
  17. SENOKOT [Concomitant]

REACTIONS (5)
  - Abscess [Recovered/Resolved]
  - Diarrhoea [Recovered/Resolved]
  - Infection [Recovered/Resolved]
  - Candida infection [Recovered/Resolved]
  - Bronchitis [Recovered/Resolved]
